FAERS Safety Report 16011807 (Version 2)
Quarter: 2020Q1

REPORT INFORMATION
  Report Type: Report from Study
  Country: US (occurrence: US)
  Receive Date: 20190227
  Receipt Date: 20200301
  Transmission Date: 20200409
  Serious: Yes (Death, Hospitalization)
  Sender: FDA-Public Use
  Company Number: PHEH2019US008366

PATIENT
  Sex: Female

DRUGS (1)
  1. ENTRESTO [Suspect]
     Active Substance: SACUBITRIL\VALSARTAN
     Indication: CARDIAC FAILURE CONGESTIVE
     Dosage: UNK
     Route: 048

REACTIONS (11)
  - Pneumonia [Unknown]
  - Wheezing [Unknown]
  - Injection site vesicles [Unknown]
  - Asthenia [Unknown]
  - Injection site bruising [Unknown]
  - Hypersensitivity [Unknown]
  - Death [Fatal]
  - Myocardial infarction [Unknown]
  - Influenza [Unknown]
  - Dyspnoea [Unknown]
  - Injection site pain [Unknown]
